FAERS Safety Report 13453135 (Version 2)
Quarter: 2017Q4

REPORT INFORMATION
  Report Type: Spontaneous
  Country: US (occurrence: US)
  Receive Date: 20170418
  Receipt Date: 20171017
  Transmission Date: 20180320
  Serious: No
  Sender: FDA-Public Use
  Company Number: US-LEO PHARMA-300707

PATIENT
  Age: 54 Year
  Sex: Female

DRUGS (1)
  1. PICATO [Suspect]
     Active Substance: INGENOL MEBUTATE
     Indication: ACTINIC KERATOSIS
     Route: 061
     Dates: start: 20170303, end: 20170305

REACTIONS (7)
  - Application site exfoliation [Recovered/Resolved]
  - Product storage error [Unknown]
  - Application site erythema [Recovered/Resolved]
  - Application site pustules [Recovered/Resolved]
  - Application site scab [Recovered/Resolved]
  - Application site erythema [Recovered/Resolved]
  - Drug ineffective [Unknown]

NARRATIVE: CASE EVENT DATE: 20170303
